FAERS Safety Report 15029800 (Version 2)
Quarter: 2018Q3

REPORT INFORMATION
  Report Type: Spontaneous
  Country: US (occurrence: US)
  Receive Date: 20180619
  Receipt Date: 20180710
  Transmission Date: 20181010
  Serious: Yes (Hospitalization, Other)
  Sender: FDA-Public Use
  Company Number: US-GLAXOSMITHKLINE-US2018109101

PATIENT
  Age: 72 Year
  Sex: Female

DRUGS (7)
  1. FLEXERIL [Concomitant]
     Active Substance: CYCLOBENZAPRINE HYDROCHLORIDE
  2. CINNAMON. [Concomitant]
     Active Substance: CINNAMON
  3. TYLENOL [Concomitant]
     Active Substance: ACETAMINOPHEN
  4. HYDROCODONE [Concomitant]
     Active Substance: HYDROCODONE
  5. MONTELUKAST [Concomitant]
     Active Substance: MONTELUKAST SODIUM
  6. ADVAIR DISKUS [Suspect]
     Active Substance: FLUTICASONE PROPIONATE\SALMETEROL XINAFOATE
     Indication: ASTHMA
     Dosage: UNK UNK, BID
     Dates: start: 1991
  7. COLACE [Concomitant]
     Active Substance: DOCUSATE SODIUM

REACTIONS (1)
  - Spinal operation [Recovering/Resolving]

NARRATIVE: CASE EVENT DATE: 20180529
